FAERS Safety Report 5261284-3 (Version None)
Quarter: 2007Q1

REPORT INFORMATION
  Report Type: 
  Country: None (occurrence: None)
  Receive Date: 20070309
  Receipt Date: 20070212
  Transmission Date: 20070707
  Serious: Yes (Other)
  Sender: FDA-Public Use
  Company Number: US-PFIZER INC-2007017396

PATIENT
  Sex: Female

DRUGS (1)
  1. LIPITOR [Suspect]

REACTIONS (4)
  - LIMB INJURY [None]
  - MUSCULAR WEAKNESS [None]
  - MYALGIA [None]
  - ROAD TRAFFIC ACCIDENT [None]
